FAERS Safety Report 7216169-X (Version None)
Quarter: 2011Q1

REPORT INFORMATION
  Report Type: 
  Country: None (occurrence: None)
  Receive Date: 20110107
  Receipt Date: 20110104
  Transmission Date: 20110831
  Serious: Yes (Death)
  Sender: FDA-Public Use
  Company Number: US-CEPHALON-2011000048

PATIENT
  Age: 20 Year
  Sex: Male

DRUGS (2)
  1. FENTANYL CITRATE (MANUFACTURER UNKNOWN) [Suspect]
  2. OXYCONTIN [Suspect]

REACTIONS (1)
  - TOXICITY TO VARIOUS AGENTS [None]
